FAERS Safety Report 4646258-5 (Version None)
Quarter: 2005Q2

REPORT INFORMATION
  Report Type: 
  Country: None (occurrence: None)
  Receive Date: 20050427
  Receipt Date: 20050418
  Transmission Date: 20051028
  Serious: Yes (Other)
  Sender: FDA-Public Use
  Company Number: US-ROCHE-402434

PATIENT
  Age: 63 Year
  Sex: Male

DRUGS (2)
  1. PEGASYS [Suspect]
     Indication: HEPATITIS C
     Dosage: ROUTE: INJ. DOSAGE REGIMEN: WEEKLY
     Route: 050
     Dates: start: 20050201, end: 20050404
  2. COPEGUS [Suspect]
     Indication: HEPATITIS C
     Route: 048
     Dates: start: 20050201, end: 20050404

REACTIONS (3)
  - ABDOMINAL PAIN UPPER [None]
  - PRURITUS [None]
  - VANISHING BILE DUCT SYNDROME [None]
